FAERS Safety Report 5689233-4 (Version None)
Quarter: 2008Q1

REPORT INFORMATION
  Report Type: 
  Country: None (occurrence: None)
  Receive Date: 20080331
  Receipt Date: 20080326
  Transmission Date: 20080703
  Serious: Yes (Hospitalization)
  Sender: FDA-Public Use
  Company Number: FR-BRISTOL-MYERS SQUIBB COMPANY-14130108

PATIENT
  Age: 65 Year
  Sex: Male

DRUGS (11)
  1. VASTEN [Suspect]
     Indication: DYSLIPIDAEMIA
     Route: 048
  2. SYMBICORT [Suspect]
     Indication: BRONCHITIS CHRONIC
     Route: 055
  3. TAVANIC [Suspect]
     Route: 048
     Dates: start: 20071001, end: 20071007
  4. SPIRIVA [Concomitant]
     Indication: BRONCHITIS CHRONIC
     Dosage: AEROSOL(SUSPENSION)
     Route: 055
  5. BRONCHODUAL [Concomitant]
     Indication: BRONCHITIS CHRONIC
     Dosage: AEROSOL(SUSPENSION)
     Route: 055
  6. AMLOR [Concomitant]
     Indication: HYPERTENSION
     Dosage: TABLETS
     Route: 048
  7. COZAAR [Concomitant]
     Indication: HYPERTENSION
     Dosage: TABLETS
     Route: 048
  8. HYZAAR [Concomitant]
     Indication: HYPERTENSION
     Dosage: TABLETS
     Route: 048
  9. LASILIX [Concomitant]
     Indication: HYPERTENSION
     Dosage: TABLETS
     Route: 048
  10. ASPEGIC 1000 [Concomitant]
     Indication: ARTERITIS
     Dosage: ORAL SOLUTION
     Route: 048
  11. SEROPRAM [Concomitant]
     Dosage: TABLETS
     Route: 048

REACTIONS (1)
  - TENDONITIS [None]
